FAERS Safety Report 6478035-7 (Version None)
Quarter: 2009Q4

REPORT INFORMATION
  Report Type: 
  Country: None (occurrence: None)
  Receive Date: 20091203
  Receipt Date: 20091203
  Transmission Date: 20100525
  Serious: Yes (Hospitalization)
  Sender: FDA-Public Use
  Company Number: None

PATIENT
  Sex: Female
  Weight: 75.4 kg

DRUGS (3)
  1. PACLITAXEL [Suspect]
     Dosage: 153 MG
     Dates: end: 20090304
  2. HERCEPTIN [Suspect]
     Dosage: 156 MG
     Dates: end: 20090304
  3. CYMBALTA [Concomitant]

REACTIONS (3)
  - LUNG INFILTRATION [None]
  - PNEUMONITIS [None]
  - PYREXIA [None]
